FAERS Safety Report 8386159 (Version 2)
Quarter: 2013Q2

REPORT INFORMATION
  Report Type: Spontaneous
  Country: US (occurrence: US)
  Receive Date: 20120202
  Receipt Date: 20130405
  Transmission Date: 20140414
  Serious: Yes (Death, Other)
  Sender: FDA-Public Use
  Company Number: PHHY2012US007787

PATIENT
  Sex: Male

DRUGS (10)
  1. METOPROLOL [Suspect]
     Route: 064
  2. AMIODARONE [Suspect]
     Route: 064
  3. AMIODARONE [Suspect]
     Dosage: 400 MG, QD
  4. AMIODARONE [Suspect]
     Dosage: (3 MG/MIN FOR 60 MIN)
  5. AMIODARONE [Suspect]
     Dosage: (1 MG/MIN) DRIP
  6. CILOSTAZOL [Suspect]
     Dosage: 100 MG, BID
     Route: 064
  7. ISOPROTERENOL [Suspect]
     Dosage: (TITRATED FROM 0.25 TO 1.0 MCG/MIN)
     Route: 064
  8. MAGNESIUM [Suspect]
     Dosage: (CONTINUOUS DRIP UP TO 2 G/HOUR)
     Route: 064
  9. QUINAGLUTE [Suspect]
     Dosage: 324 MG, TID
     Route: 064
  10. ESMOLOL [Suspect]
     Dosage: (50 MCG/KG/MIN)
     Route: 064

REACTIONS (7)
  - Sudden cardiac death [Fatal]
  - Ventricular extrasystoles [Unknown]
  - Hypotonia [Unknown]
  - Apnoea [Unknown]
  - Premature baby [Unknown]
  - Contusion [Unknown]
  - Foetal exposure during pregnancy [Unknown]
